FAERS Safety Report 5501995-5 (Version None)
Quarter: 2007Q4

REPORT INFORMATION
  Report Type: 
  Country: None (occurrence: None)
  Receive Date: 20071030
  Receipt Date: 20071019
  Transmission Date: 20080405
  Serious: Yes (Other)
  Sender: FDA-Public Use
  Company Number: B0465837A

PATIENT
  Age: 27 Year
  Sex: Female
  Weight: 65 kg

DRUGS (3)
  1. LAMICTAL [Suspect]
     Indication: EPILEPSY
     Dosage: 300MG PER DAY
     Route: 048
     Dates: start: 20060401
  2. TEGRETOL [Suspect]
     Indication: EPILEPSY
     Dosage: 800MG PER DAY
     Route: 048
  3. PHENOBARBITAL TAB [Suspect]
     Indication: EPILEPSY
     Dosage: 100MG PER DAY
     Route: 048

REACTIONS (8)
  - CAESAREAN SECTION [None]
  - COMPLEX PARTIAL SEIZURES [None]
  - DRUG EXPOSURE DURING PREGNANCY [None]
  - GRAND MAL CONVULSION [None]
  - HEADACHE [None]
  - MOVEMENT DISORDER [None]
  - PREGNANCY [None]
  - SIMPLE PARTIAL SEIZURES [None]
